FAERS Safety Report 12854548 (Version 1)
Quarter: 2016Q4

REPORT INFORMATION
  Report Type: Spontaneous
  Country: CA (occurrence: CA)
  Receive Date: 20161017
  Receipt Date: 20161017
  Transmission Date: 20170207
  Serious: Yes (Life-Threatening)
  Sender: FDA-Public Use
  Company Number: CA-BAYER-2016-197191

PATIENT
  Age: 60 Year
  Sex: Female

DRUGS (5)
  1. CIPRALEX [Concomitant]
     Active Substance: ESCITALOPRAM OXALATE
     Indication: DEPRESSION
     Dosage: 5 MG, QD
  2. ETHINYL ESTRADIOL W/NORGESTREL [Suspect]
     Active Substance: ETHINYL ESTRADIOL\NORGESTREL
     Indication: AFFECTIVE DISORDER
     Dosage: 1 DOSAGE FORM 3 EVERY 4 WEEKS
     Route: 062
  3. CLIMARA [Suspect]
     Active Substance: ESTRADIOL
     Indication: AFFECTIVE DISORDER
     Dosage: UNK
     Route: 062
  4. WELLBUTRIN [Concomitant]
     Active Substance: BUPROPION HYDROCHLORIDE
     Indication: DEPRESSION
     Dosage: 100 MG, QD
  5. ESTRACE [Suspect]
     Active Substance: ESTRADIOL
     Indication: AFFECTIVE DISORDER
     Dosage: UNK
     Route: 048

REACTIONS (3)
  - Product use issue [None]
  - Off label use [None]
  - Suicide attempt [None]
